FAERS Safety Report 19397768 (Version 2)
Quarter: 2021Q2

REPORT INFORMATION
  Report Type: Spontaneous
  Country: CZ (occurrence: CZ)
  Receive Date: 20210610
  Receipt Date: 20210625
  Transmission Date: 20210717
  Serious: Yes (Hospitalization, Other)
  Sender: FDA-Public Use
  Company Number: CZ-REGENERON PHARMACEUTICALS, INC.-2021-57468

PATIENT

DRUGS (5)
  1. PRALUENT [Suspect]
     Active Substance: ALIROCUMAB
     Dosage: 75 MG, QOW
     Route: 058
  2. EZETROL [Concomitant]
     Active Substance: EZETIMIBE
     Indication: TYPE IIA HYPERLIPIDAEMIA
     Dosage: 10 UNK
     Route: 065
     Dates: start: 201109
  3. PRALUENT [Suspect]
     Active Substance: ALIROCUMAB
     Indication: HYPERCHOLESTEROLAEMIA
     Dosage: 150 MG, QOW
     Route: 058
  4. SORTIS [Concomitant]
     Active Substance: ATORVASTATIN
     Dosage: 80 UNK
     Route: 065
     Dates: start: 201109
  5. SORTIS [Concomitant]
     Active Substance: ATORVASTATIN
     Indication: TYPE IIA HYPERLIPIDAEMIA
     Dosage: 40 UNK
     Route: 065
     Dates: start: 2003

REACTIONS (4)
  - Arterial stenosis [Recovered/Resolved]
  - Breast pain [Recovered/Resolved]
  - Angina pectoris [Recovered/Resolved]
  - Treatment noncompliance [Unknown]
